FAERS Safety Report 20349951 (Version 1)
Quarter: 2022Q1

REPORT INFORMATION
  Report Type: Spontaneous
  Country: US (occurrence: None)
  Receive Date: 20220119
  Receipt Date: 20220119
  Transmission Date: 20220423
  Serious: Yes (Hospitalization)
  Sender: FDA-Public Use
  Company Number: None

PATIENT
  Sex: Female
  Weight: 85.6 kg

DRUGS (3)
  1. BENDAMUSTINE HYDROCHLORIDE [Suspect]
     Active Substance: BENDAMUSTINE HYDROCHLORIDE
     Dates: end: 20210518
  2. CYTARABINE [Suspect]
     Active Substance: CYTARABINE
     Dates: end: 20210617
  3. RITUXIMAB [Suspect]
     Active Substance: RITUXIMAB
     Dates: end: 20210614

REACTIONS (9)
  - Pharyngeal swelling [None]
  - Swollen tongue [None]
  - Dyspnoea [None]
  - Throat tightness [None]
  - Pruritus [None]
  - Rash [None]
  - Lip swelling [None]
  - Speech disorder [None]
  - Anaphylactic reaction [None]

NARRATIVE: CASE EVENT DATE: 20210618
